FAERS Safety Report 14770301 (Version 1)
Quarter: 2018Q2

REPORT INFORMATION
  Report Type: Spontaneous
  Country: NL (occurrence: NL)
  Receive Date: 20180417
  Receipt Date: 20180417
  Transmission Date: 20180711
  Serious: Yes (Hospitalization)
  Sender: FDA-Public Use
  Company Number: NL-PFIZER INC-2018153474

PATIENT
  Age: 29 Year
  Sex: Male
  Weight: 80 kg

DRUGS (3)
  1. SULFASALAZINE. [Suspect]
     Active Substance: SULFASALAZINE
     Indication: RHEUMATOID ARTHRITIS
     Dosage: 1000 MG, 2X/DAY (2DD2)
     Dates: start: 20150701, end: 20160901
  2. PREDNISOLON /00016201/ [Suspect]
     Active Substance: PREDNISOLONE
     Indication: ARTHRITIS REACTIVE
     Dosage: 1 DF, DAILY (30 - 5 MG)
     Dates: start: 20150701, end: 20160901
  3. OMEPRAZOL [Suspect]
     Active Substance: OMEPRAZOLE
     Indication: ARTHRITIS REACTIVE
     Dosage: 1 DF, DAILY
     Dates: start: 20150701, end: 20160901

REACTIONS (5)
  - Vomiting [Recovered/Resolved]
  - Tachycardia [Recovered/Resolved]
  - Daydreaming [Recovered/Resolved]
  - Headache [Recovered/Resolved]
  - Restlessness [Recovered/Resolved]

NARRATIVE: CASE EVENT DATE: 20170701
